FAERS Safety Report 16755038 (Version 1)
Quarter: 2019Q3

REPORT INFORMATION
  Report Type: Spontaneous
  Country: US (occurrence: US)
  Receive Date: 20190829
  Receipt Date: 20190829
  Transmission Date: 20191005
  Serious: No
  Sender: FDA-Public Use
  Company Number: US-009507513-1908USA006906

PATIENT
  Sex: Female
  Weight: 126 kg

DRUGS (1)
  1. NEXPLANON [Suspect]
     Active Substance: ETONOGESTREL
     Indication: CONTRACEPTION
     Dosage: IMPLANT, LEFT ARM, 3 YEARS
     Route: 059

REACTIONS (4)
  - Gastritis [Unknown]
  - Loss of libido [Unknown]
  - Menstruation irregular [Unknown]
  - Abdominal distension [Unknown]
